FAERS Safety Report 5533177-5 (Version None)
Quarter: 2007Q4

REPORT INFORMATION
  Report Type: 
  Country: None (occurrence: None)
  Receive Date: 20071204
  Receipt Date: 20071123
  Transmission Date: 20080405
  Serious: Yes (Other)
  Sender: FDA-Public Use
  Company Number: VE-ROCHE-493367

PATIENT
  Age: 21 Year
  Sex: Female

DRUGS (1)
  1. ROACCUTANE [Suspect]
     Indication: ACNE
     Route: 048
     Dates: start: 20070301, end: 20070409

REACTIONS (4)
  - DYSMENORRHOEA [None]
  - EPISTAXIS [None]
  - MYALGIA [None]
  - XEROSIS [None]
